FAERS Safety Report 15007398 (Version 1)
Quarter: 2018Q2

REPORT INFORMATION
  Report Type: Spontaneous
  Country: US (occurrence: US)
  Receive Date: 20180613
  Receipt Date: 20180613
  Transmission Date: 20180711
  Serious: Yes (Death)
  Sender: FDA-Public Use
  Company Number: US-BAYER-2018-112340

PATIENT
  Age: 70 Year
  Sex: Female

DRUGS (2)
  1. ADEMPAS [Suspect]
     Active Substance: RIOCIGUAT
     Indication: PULMONARY EMBOLISM
     Dosage: 0.5 MG, TID
     Route: 048
     Dates: start: 20180420, end: 20180530
  2. ADEMPAS [Suspect]
     Active Substance: RIOCIGUAT
     Indication: PULMONARY HYPERTENSION

REACTIONS (4)
  - Dizziness [None]
  - Off label use [None]
  - Death [Fatal]
  - Hypotension [None]

NARRATIVE: CASE EVENT DATE: 201805
